FAERS Safety Report 22207355 (Version 1)
Quarter: 2023Q2

REPORT INFORMATION
  Report Type: Spontaneous
  Country: CN (occurrence: None)
  Receive Date: 20230413
  Receipt Date: 20230413
  Transmission Date: 20230721
  Serious: Yes (Death)
  Sender: FDA-Public Use
  Company Number: 2023A084924

PATIENT
  Age: 71 Year
  Sex: Male
  Weight: 41.5 kg

DRUGS (1)
  1. IMFINZI [Suspect]
     Active Substance: DURVALUMAB
     Indication: Small cell lung cancer extensive stage
     Dosage: LAST DOSE 1000MG/CYCLE
     Route: 042
     Dates: start: 20230106, end: 20230106

REACTIONS (1)
  - Death [Fatal]
